FAERS Safety Report 6992559-5 (Version None)
Quarter: 2010Q3

REPORT INFORMATION
  Report Type: 
  Country: None (occurrence: None)
  Receive Date: 20100917
  Receipt Date: 20100915
  Transmission Date: 20110219
  Serious: Yes (Life-Threatening)
  Sender: FDA-Public Use
  Company Number: RS-ROCHE-721726

PATIENT
  Sex: Female
  Weight: 70 kg

DRUGS (8)
  1. TOCILIZUMAB [Suspect]
     Indication: RHEUMATOID ARTHRITIS
     Route: 042
     Dates: start: 20060823
  2. TOCILIZUMAB [Suspect]
     Route: 042
     Dates: start: 20080829, end: 20080829
  3. TOCILIZUMAB [Suspect]
     Route: 042
     Dates: start: 20080929, end: 20080929
  4. TOCILIZUMAB [Suspect]
     Route: 042
     Dates: start: 20081024, end: 20081024
  5. TOCILIZUMAB [Suspect]
     Route: 042
     Dates: start: 20081107, end: 20081107
  6. TOCILIZUMAB [Suspect]
     Route: 042
     Dates: end: 20090213
  7. TOCILIZUMAB [Suspect]
     Route: 042
     Dates: start: 20090511, end: 20100802
  8. TOCILIZUMAB [Suspect]
     Dosage: PREVIOUSLY ENROLLED IN DOUBLE BLINDED CORE STUDY  WA17824, UNBLINDING REVEALED PT ON TOCILIZUMAB
     Route: 042

REACTIONS (3)
  - COLON CANCER [None]
  - COLON NEOPLASM [None]
  - POSTOPERATIVE ILEUS [None]
